FAERS Safety Report 10079536 (Version 1)
Quarter: 2014Q2

REPORT INFORMATION
  Report Type: Spontaneous
  Country: US (occurrence: US)
  Receive Date: 20140415
  Receipt Date: 20140415
  Transmission Date: 20141212
  Serious: No
  Sender: FDA-Public Use
  Company Number: US-TEVA-475374USA

PATIENT
  Sex: Male
  Weight: 87.17 kg

DRUGS (2)
  1. NUVIGIL [Suspect]
     Indication: SLEEP APNOEA SYNDROME
     Dates: start: 2011
  2. MORPHINE SULFATE [Suspect]
     Indication: BACK PAIN
     Dosage: 10 MILLIGRAM DAILY;
     Route: 048

REACTIONS (2)
  - Irritability [Recovered/Resolved]
  - Weight decreased [Recovered/Resolved]
